FAERS Safety Report 6187234 (Version 23)
Quarter: 2016Q4

REPORT INFORMATION
  Report Type: Spontaneous
  Country: US (occurrence: US)
  Receive Date: 20061214
  Receipt Date: 20161215
  Transmission Date: 20170207
  Serious: Yes (Hospitalization, Disabling, Other)
  Sender: FDA-Public Use
  Company Number: US-ROCHE-473887

PATIENT
  Age: 42 Year
  Sex: Female
  Weight: 79.4 kg

DRUGS (13)
  1. ACCUTANE [Suspect]
     Active Substance: ISOTRETINOIN
     Route: 048
     Dates: start: 1988, end: 198901
  2. VALIUM [Concomitant]
     Active Substance: DIAZEPAM
     Route: 065
  3. PREDNISONE. [Concomitant]
     Active Substance: PREDNISONE
  4. CELEXA [Concomitant]
     Active Substance: CITALOPRAM HYDROBROMIDE
     Route: 065
     Dates: start: 1996
  5. ATIVAN [Concomitant]
     Active Substance: LORAZEPAM
     Route: 065
     Dates: start: 2001
  6. ACCUTANE [Suspect]
     Active Substance: ISOTRETINOIN
     Route: 048
  7. ZOLOFT [Concomitant]
     Active Substance: SERTRALINE HYDROCHLORIDE
     Route: 065
     Dates: start: 1996
  8. SEROQUEL [Concomitant]
     Active Substance: QUETIAPINE FUMARATE
     Route: 065
     Dates: start: 2001
  9. LABETALOL [Concomitant]
     Active Substance: LABETALOL\LABETALOL HYDROCHLORIDE
  10. COLAZAL [Concomitant]
     Active Substance: BALSALAZIDE DISODIUM
     Route: 065
     Dates: start: 2005
  11. PROZAC [Concomitant]
     Active Substance: FLUOXETINE HYDROCHLORIDE
     Route: 065
     Dates: start: 1996
  12. ACCUTANE [Suspect]
     Active Substance: ISOTRETINOIN
     Indication: ACNE CYSTIC
     Route: 048
     Dates: start: 1981, end: 1982
  13. BACTRIM [Concomitant]
     Active Substance: SULFAMETHOXAZOLE\TRIMETHOPRIM
     Route: 065
     Dates: start: 19820903

REACTIONS (34)
  - Crohn^s disease [Not Recovered/Not Resolved]
  - Large intestinal ulcer [Unknown]
  - Insomnia [Unknown]
  - Anaemia [Unknown]
  - Obsessive-compulsive disorder [Not Recovered/Not Resolved]
  - Panic attack [Not Recovered/Not Resolved]
  - Irritable bowel syndrome [Unknown]
  - Aortic aneurysm [Not Recovered/Not Resolved]
  - Morbid thoughts [Unknown]
  - Intestinal haemorrhage [Unknown]
  - Crohn^s disease [Unknown]
  - Polyp [Unknown]
  - Arthritis [Not Recovered/Not Resolved]
  - Back pain [Unknown]
  - Depersonalisation/derealisation disorder [Unknown]
  - Anxiety [Not Recovered/Not Resolved]
  - Pulmonary mass [Not Recovered/Not Resolved]
  - Proctitis ulcerative [Unknown]
  - Fatigue [Unknown]
  - Arrhythmia [Unknown]
  - Bipolar disorder [Unknown]
  - Cystitis [Unknown]
  - Flight of ideas [Unknown]
  - Abdominal hernia [Unknown]
  - Inflammatory bowel disease [Not Recovered/Not Resolved]
  - Depression [Unknown]
  - Hypertension [Unknown]
  - Palpitations [Unknown]
  - Colitis ulcerative [Not Recovered/Not Resolved]
  - Chronic fatigue syndrome [Unknown]
  - Asthma [Unknown]
  - Neck injury [Unknown]
  - Phobia [Unknown]
  - Osteoarthritis [Unknown]

NARRATIVE: CASE EVENT DATE: 1983
